FAERS Safety Report 5475621-8 (Version None)
Quarter: 2007Q3

REPORT INFORMATION
  Report Type: 
  Country: None (occurrence: None)
  Receive Date: 20070912
  Receipt Date: 20070529
  Transmission Date: 20080115
  Serious: Yes (Other)
  Sender: FDA-Public Use
  Company Number: 2007045210

PATIENT
  Age: 28 Year
  Sex: Female
  Weight: 68 kg

DRUGS (1)
  1. MISOPROSTOL [Suspect]
     Indication: ABORTION INDUCED
     Dosage: (1 IN 1 D), VAGINAL
     Route: 067
     Dates: start: 20070501

REACTIONS (5)
  - FEELING ABNORMAL [None]
  - IMPAIRED WORK ABILITY [None]
  - PAIN [None]
  - PALLOR [None]
  - VAGINAL HAEMORRHAGE [None]
